FAERS Safety Report 8810777 (Version 1)
Quarter: 2012Q4

REPORT INFORMATION
  Report Type: 
  Country: BA (occurrence: BA)
  Receive Date: 20120927
  Receipt Date: 20120927
  Transmission Date: 20130627
  Serious: Yes (Other)
  Sender: FDA-Public Use
  Company Number: BA-JNJFOC-20120906766

PATIENT

DRUGS (4)
  1. RISPERIDONE [Suspect]
     Indication: SCHIZOPHRENIA
     Route: 065
  2. HALOPERIDOL [Suspect]
     Indication: SCHIZOPHRENIA
     Route: 065
  3. AMISULPRIDE [Suspect]
     Indication: SCHIZOPHRENIA
     Route: 065
  4. CHLORPROMAZINE [Suspect]
     Indication: SCHIZOPHRENIA
     Route: 065

REACTIONS (9)
  - Hyperprolactinaemia [Recovered/Resolved]
  - Hallucination [Unknown]
  - Amenorrhoea [Unknown]
  - Galactorrhoea [Unknown]
  - Compulsions [Unknown]
  - Anxiety [Unknown]
  - Sleep disorder [Unknown]
  - Hostility [Unknown]
  - Headache [Unknown]
